FAERS Safety Report 6589807-2 (Version None)
Quarter: 2010Q1

REPORT INFORMATION
  Report Type: 
  Country: None (occurrence: None)
  Receive Date: 20100212
  Receipt Date: 20100128
  Transmission Date: 20100710
  Serious: Yes (Death)
  Sender: FDA-Public Use
  Company Number: 2010S1000105

PATIENT
  Age: 32 Year
  Sex: Male

DRUGS (2)
  1. DARVOCET-N 100 [Suspect]
     Indication: DRUG ABUSE
     Dosage: PO
     Route: 048
     Dates: end: 20100109
  2. FENTANYL [Suspect]
     Indication: DRUG ABUSE
     Dosage: SL
     Route: 060
     Dates: start: 20100109, end: 20100109

REACTIONS (5)
  - COMPLETED SUICIDE [None]
  - OVERDOSE [None]
  - PULMONARY CONGESTION [None]
  - PULMONARY OEDEMA [None]
  - SELF-MEDICATION [None]
